FAERS Safety Report 16199669 (Version 3)
Quarter: 2023Q2

REPORT INFORMATION
  Report Type: Spontaneous
  Country: US (occurrence: None)
  Receive Date: 20190415
  Receipt Date: 20230420
  Transmission Date: 20230721
  Serious: Yes (Other)
  Sender: FDA-Public Use
  Company Number: 2019SE09688

PATIENT
  Age: 26656 Day
  Sex: Female
  Weight: 74.4 kg

DRUGS (27)
  1. NEXIUM [Suspect]
     Active Substance: ESOMEPRAZOLE MAGNESIUM
     Dosage: FOR MULTIPLE AND VARIOUS YEARS
     Route: 048
  2. NEXIUM [Suspect]
     Active Substance: ESOMEPRAZOLE MAGNESIUM
     Route: 048
     Dates: start: 2004, end: 2010
  3. PREVACID [Suspect]
     Active Substance: LANSOPRAZOLE
     Dosage: FOR MULTIPLE AND VARIOUS YEARS
     Route: 065
  4. PREVACID [Suspect]
     Active Substance: LANSOPRAZOLE
     Route: 065
     Dates: start: 2004
  5. METOPROLOL TARTRATE [Concomitant]
     Active Substance: METOPROLOL TARTRATE
  6. TUMS [Concomitant]
     Active Substance: CALCIUM CARBONATE
  7. ROCALTROL [Concomitant]
     Active Substance: CALCITRIOL
  8. KEFLEX [Concomitant]
     Active Substance: CEPHALEXIN
  9. EXCEDRIN [Concomitant]
     Active Substance: ACETAMINOPHEN\ASPIRIN\CAFFEINE
  10. PENICILLIN [Concomitant]
     Active Substance: PENICILLIN
  11. CODEINE [Concomitant]
     Active Substance: CODEINE
  12. OMEPRAZOLE [Concomitant]
     Active Substance: OMEPRAZOLE
  13. ACETARSOL/3-ARGENTOTHIO-2-HYDROXY-1-PROPANESULFATE SODIUM [Concomitant]
  14. VITAMIN D [Concomitant]
     Active Substance: VITAMIN D NOS
  15. VITAMIN E [Concomitant]
     Active Substance: .ALPHA.-TOCOPHEROL
  16. FIORICET [Concomitant]
     Active Substance: ACETAMINOPHEN\BUTALBITAL\CAFFEINE
  17. COENZYME Q10 [Concomitant]
     Active Substance: DIETARY SUPPLEMENT\UBIDECARENONE
  18. PROCRIT [Concomitant]
     Active Substance: ERYTHROPOIETIN
  19. FISH OIL [Concomitant]
     Active Substance: FISH OIL
  20. MAGOX [Concomitant]
  21. BETA CAROTENE [Concomitant]
     Active Substance: BETA CAROTENE
  22. ACIPHEX [Concomitant]
     Active Substance: RABEPRAZOLE SODIUM
  23. CAPTOPRIL [Concomitant]
     Active Substance: CAPTOPRIL
  24. TRETINOIN [Concomitant]
     Active Substance: TRETINOIN
  25. CYCLOBENZAPRINE [Concomitant]
     Active Substance: CYCLOBENZAPRINE
  26. FEXOFENADINE [Concomitant]
     Active Substance: FEXOFENADINE HYDROCHLORIDE
  27. VITAMINS [Concomitant]
     Active Substance: VITAMINS

REACTIONS (6)
  - Chronic kidney disease [Unknown]
  - Renal failure [Unknown]
  - Renal injury [Unknown]
  - Nephropathy [Unknown]
  - End stage renal disease [Unknown]
  - Rebound acid hypersecretion [Unknown]

NARRATIVE: CASE EVENT DATE: 20110322
